FAERS Safety Report 11505017 (Version 1)
Quarter: 2015Q3

REPORT INFORMATION
  Report Type: Spontaneous
  Country: PT (occurrence: PT)
  Receive Date: 20150915
  Receipt Date: 20150915
  Transmission Date: 20151125
  Serious: Yes (Other)
  Sender: FDA-Public Use
  Company Number: PT-ACCORD-033706

PATIENT
  Age: 71 Year
  Sex: Male
  Weight: 67 kg

DRUGS (6)
  1. OXALIPLATIN ACCORD [Interacting]
     Active Substance: OXALIPLATIN
     Indication: RECTAL CANCER
     Route: 042
     Dates: start: 20150604
  2. CAPECITABINE. [Suspect]
     Active Substance: CAPECITABINE
     Indication: RECTAL CANCER
     Route: 048
     Dates: start: 20150604
  3. DEXAMETHASONE. [Concomitant]
     Active Substance: DEXAMETHASONE
     Indication: RECTAL CANCER
     Route: 042
  4. MAGNESIUM SULFATE. [Concomitant]
     Active Substance: MAGNESIUM SULFATE
     Indication: RECTAL CANCER
     Route: 042
  5. CALCIUM GLUCONATE. [Concomitant]
     Active Substance: CALCIUM GLUCONATE
     Indication: RECTAL CANCER
     Route: 042
  6. ONDANSETRON/ONDANSETRON HYDROCHLORIDE [Concomitant]
     Indication: RECTAL CANCER
     Route: 042

REACTIONS (3)
  - Drug interaction [Unknown]
  - Embolism venous [Recovered/Resolved]
  - Oedema peripheral [Recovered/Resolved]

NARRATIVE: CASE EVENT DATE: 20150624
